FAERS Safety Report 14872434 (Version 1)
Quarter: 2018Q2

REPORT INFORMATION
  Report Type: Spontaneous
  Country: US (occurrence: US)
  Receive Date: 20180510
  Receipt Date: 20180510
  Transmission Date: 20180711
  Serious: Yes (Other)
  Sender: FDA-Public Use
  Company Number: US-SUN PHARMACEUTICAL INDUSTRIES LTD-2018US-172250

PATIENT
  Age: 32 Year
  Sex: Male

DRUGS (1)
  1. TESTOSTERONE. [Suspect]
     Active Substance: TESTOSTERONE
     Indication: ERECTILE DYSFUNCTION
     Dosage: 1.5 ML EVERY TWO WEEKS
     Route: 030
     Dates: start: 20180425

REACTIONS (3)
  - Poor quality drug administered [Unknown]
  - Product contamination microbial [Unknown]
  - Product deposit [Unknown]

NARRATIVE: CASE EVENT DATE: 20180425
